FAERS Safety Report 23870227 (Version 1)
Quarter: 2024Q2

REPORT INFORMATION
  Report Type: Other
  Country: IN (occurrence: US)
  Receive Date: 20240517
  Receipt Date: 20240517
  Transmission Date: 20240716
  Serious: Yes (Hospitalization, Other)
  Sender: FDA-Public Use
  Company Number: US-Breckenridge Pharmaceutical, Inc.-2155439

PATIENT
  Age: 41 Year
  Sex: Male

DRUGS (1)
  1. TERBINAFINE [Suspect]
     Active Substance: TERBINAFINE
     Indication: Onychomycosis
     Route: 048

REACTIONS (8)
  - Drug-induced liver injury [Recovering/Resolving]
  - Abdominal pain upper [Recovered/Resolved]
  - Pruritus [Unknown]
  - Cholestasis [Unknown]
  - Cholecystitis [Unknown]
  - Ocular icterus [Unknown]
  - Faeces pale [Unknown]
  - Jaundice [Unknown]
